FAERS Safety Report 6726319-7 (Version None)
Quarter: 2010Q2

REPORT INFORMATION
  Report Type: 
  Country: None (occurrence: None)
  Receive Date: 20100514
  Receipt Date: 20100507
  Transmission Date: 20101027
  Serious: Yes (Hospitalization)
  Sender: FDA-Public Use
  Company Number: A0787855A

PATIENT
  Age: 52 Year
  Sex: Female

DRUGS (2)
  1. AVANDIA [Suspect]
     Dosage: 4U PER DAY
     Route: 048
     Dates: start: 20010301, end: 20031201
  2. AVANDAMET [Suspect]
     Dates: start: 20031201, end: 20060801

REACTIONS (5)
  - ASTHENIA [None]
  - CHEST PAIN [None]
  - FATIGUE [None]
  - GAIT DISTURBANCE [None]
  - MYOCARDIAL INFARCTION [None]
